FAERS Safety Report 21843416 (Version 1)
Quarter: 2023Q1

REPORT INFORMATION
  Report Type: Spontaneous
  Country: US (occurrence: US)
  Receive Date: 20230110
  Receipt Date: 20230110
  Transmission Date: 20230418
  Serious: No
  Sender: FDA-Public Use
  Company Number: US-SA-SAC20230109000227

PATIENT
  Sex: Female

DRUGS (1)
  1. KEVZARA [Suspect]
     Active Substance: SARILUMAB
     Indication: Drug therapy
     Dosage: 150 MG, QOW
     Route: 058

REACTIONS (3)
  - Arthralgia [Unknown]
  - Bone pain [Unknown]
  - Product use in unapproved indication [Unknown]
